FAERS Safety Report 4981175-2 (Version None)
Quarter: 2006Q2

REPORT INFORMATION
  Report Type: 
  Country: None (occurrence: None)
  Receive Date: 20060418
  Receipt Date: 20060403
  Transmission Date: 20061013
  Serious: Yes (Death)
  Sender: FDA-Public Use
  Company Number: 2006S1001404

PATIENT
  Age: 83 Year
  Sex: Female

DRUGS (9)
  1. CLOZAPINE [Suspect]
     Indication: DEMENTIA ALZHEIMER'S TYPE
     Dosage: 50 + 100 MG; QAM; ORAL
     Route: 048
  2. LORAZEPAM [Concomitant]
  3. HYOSCYAMINE SULFATE [Concomitant]
  4. MORPHINE SULFATE [Concomitant]
  5. VERAPAMIL HYDROCHLORIDE [Concomitant]
  6. CLONAZEPAM [Concomitant]
  7. DULOXETINE [Concomitant]
  8. DIGOXIN [Concomitant]
  9. PROPRANOLOL [Concomitant]

REACTIONS (2)
  - DEMENTIA ALZHEIMER'S TYPE [None]
  - DISEASE PROGRESSION [None]
